FAERS Safety Report 19868874 (Version 1)
Quarter: 2021Q3

REPORT INFORMATION
  Report Type: Spontaneous
  Country: CN (occurrence: CN)
  Receive Date: 20210922
  Receipt Date: 20210922
  Transmission Date: 20211014
  Serious: Yes (Other)
  Sender: FDA-Public Use
  Company Number: CN-PFIZER INC-202101192661

PATIENT
  Age: 50 Year
  Sex: Female

DRUGS (9)
  1. CYCLOPHOSPHAMIDE. [Suspect]
     Active Substance: CYCLOPHOSPHAMIDE
     Dosage: UNK
     Dates: start: 20210716
  2. PACLITAXEL ALBUMIN [Suspect]
     Active Substance: PACLITAXEL
     Dosage: UNK
     Dates: start: 20210527
  3. CYCLOPHOSPHAMIDE. [Suspect]
     Active Substance: CYCLOPHOSPHAMIDE
     Dosage: UNK
     Dates: start: 20210616
  4. PACLITAXEL ALBUMIN [Suspect]
     Active Substance: PACLITAXEL
     Dosage: UNK
     Dates: start: 20210616
  5. PACLITAXEL ALBUMIN [Suspect]
     Active Substance: PACLITAXEL
     Dosage: UNK
     Dates: start: 20210716
  6. EPIRUBICIN HCL [Suspect]
     Active Substance: EPIRUBICIN HYDROCHLORIDE
     Dosage: UNK
     Dates: start: 20210616
  7. EPIRUBICIN HCL [Suspect]
     Active Substance: EPIRUBICIN HYDROCHLORIDE
     Dosage: UNK
     Dates: start: 20210716
  8. CYCLOPHOSPHAMIDE. [Suspect]
     Active Substance: CYCLOPHOSPHAMIDE
     Dosage: UNK
     Dates: start: 20210527
  9. EPIRUBICIN HCL [Suspect]
     Active Substance: EPIRUBICIN HYDROCHLORIDE
     Dosage: UNK
     Dates: start: 20210527

REACTIONS (3)
  - Alanine aminotransferase increased [Unknown]
  - Liver function test abnormal [Unknown]
  - Drug-induced liver injury [Unknown]

NARRATIVE: CASE EVENT DATE: 2021
